FAERS Safety Report 4493140-2 (Version None)
Quarter: 2004Q4

REPORT INFORMATION
  Report Type: 
  Country: None (occurrence: None)
  Receive Date: 20041029
  Receipt Date: 20041020
  Transmission Date: 20050328
  Serious: Yes (Hospitalization, Other)
  Sender: FDA-Public Use
  Company Number: HQWYE640029APR04

PATIENT
  Age: 56 Year
  Sex: Male
  Weight: 75.82 kg

DRUGS (17)
  1. RAPAMUNE [Suspect]
     Indication: IMMUNOSUPPRESSANT DRUG THERAPY
     Dosage: 4 MG 1X PER 1 DAY, ORAL
     Route: 048
     Dates: start: 20040324
  2. RAPAMUNE [Suspect]
     Indication: PROPHYLAXIS AGAINST TRANSPLANT REJECTION
     Dosage: 4 MG 1X PER 1 DAY, ORAL
     Route: 048
     Dates: start: 20040324
  3. PREDNISONE [Concomitant]
  4. NORVASC [Concomitant]
  5. INSULIN HUMULIN 70/30 (INSULIN HUMAN/INSULIN HUMAN INJECTION, ISOPHANE [Concomitant]
  6. PROGRAF [Concomitant]
  7. VALCYTE [Concomitant]
  8. BACTRIM DS (SULFAMETHAZOLE/TRIMETHOPRIM) [Concomitant]
  9. COLACE (DOCUSATE SODIUM) [Concomitant]
  10. CATAPRES [Concomitant]
  11. OS-CAL + D (CALCIUM CARBONATE/COLECALCIFEROL) [Concomitant]
  12. FOLIC ACID [Concomitant]
  13. LOPRESSOR [Concomitant]
  14. OMEPRAZOLE [Concomitant]
  15. NEUTRA-PHOS (POTASSIUM PHOSPHATE DIBASIC/POTASSIUM PHOSPHATE MONOBASIC [Concomitant]
  16. MAGNESIUM OXIDE (MAGNESIUM OXIDE) [Concomitant]
  17. MINOXIDIL [Concomitant]

REACTIONS (22)
  - BLOOD CREATININE INCREASED [None]
  - BLOOD GLUCOSE FLUCTUATION [None]
  - BLOOD POTASSIUM INCREASED [None]
  - BLOOD PRESSURE INCREASED [None]
  - BLOOD SODIUM DECREASED [None]
  - BLOOD THYROID STIMULATING HORMONE DECREASED [None]
  - BLOOD TRIGLYCERIDES INCREASED [None]
  - BODY TEMPERATURE DECREASED [None]
  - CHEST PAIN [None]
  - CORONARY ARTERY DISEASE [None]
  - DYSPNOEA [None]
  - EJECTION FRACTION DECREASED [None]
  - ELECTROCARDIOGRAM ST SEGMENT DEPRESSION [None]
  - ELECTROCARDIOGRAM ST-T CHANGE [None]
  - GASTROOESOPHAGEAL REFLUX DISEASE [None]
  - HAEMOGLOBIN DECREASED [None]
  - HIATUS HERNIA [None]
  - MYOCARDIAL ISCHAEMIA [None]
  - SCAN MYOCARDIAL PERFUSION ABNORMAL [None]
  - SINUS BRADYCARDIA [None]
  - THROAT IRRITATION [None]
  - WHITE BLOOD CELL COUNT DECREASED [None]
